FAERS Safety Report 4313179-7 (Version None)
Quarter: 2004Q1

REPORT INFORMATION
  Report Type: 
  Country: None (occurrence: None)
  Receive Date: 20040304
  Receipt Date: 20040219
  Transmission Date: 20041129
  Serious: Yes (Hospitalization)
  Sender: FDA-Public Use
  Company Number: CEL-2004-00210-ROC

PATIENT
  Age: 45 Year
  Sex: Female

DRUGS (4)
  1. DELSYM [Suspect]
  2. ALEVE [Concomitant]
  3. ENPRESSE [Concomitant]
  4. ALCOHOL (ETHANOL) [Concomitant]

REACTIONS (9)
  - ABNORMAL BEHAVIOUR [None]
  - ALCOHOL USE [None]
  - BRADYKINESIA [None]
  - DRUG ABUSER [None]
  - FEELING ABNORMAL [None]
  - OVERDOSE [None]
  - PARANOIA [None]
  - STARING [None]
  - THINKING ABNORMAL [None]
